FAERS Safety Report 7776322-3 (Version None)
Quarter: 2011Q3

REPORT INFORMATION
  Report Type: 
  Country: None (occurrence: None)
  Receive Date: 20110926
  Receipt Date: 20110915
  Transmission Date: 20111222
  Serious: Yes (Other)
  Sender: FDA-Public Use
  Company Number: CA-JNJFOC-20110907450

PATIENT
  Sex: Female
  Weight: 81.4 kg

DRUGS (9)
  1. LIPITOR [Concomitant]
  2. METFORMIN HCL [Concomitant]
  3. REMICADE [Suspect]
     Indication: RHEUMATOID ARTHRITIS
     Route: 042
     Dates: start: 20100801
  4. METHOTREXATE [Concomitant]
  5. DIAMICRON [Concomitant]
  6. METOPROLOL SUCCINATE [Concomitant]
  7. ACTONEL [Concomitant]
  8. AVALIDE [Concomitant]
  9. ASPIRIN [Concomitant]

REACTIONS (3)
  - CUTANEOUS LUPUS ERYTHEMATOSUS [None]
  - HOUSE DUST ALLERGY [None]
  - ALLERGY TO PLANTS [None]
